FAERS Safety Report 25564468 (Version 1)
Quarter: 2025Q3

REPORT INFORMATION
  Report Type: Spontaneous
  Country: MA (occurrence: MA)
  Receive Date: 20250716
  Receipt Date: 20250716
  Transmission Date: 20251021
  Serious: Yes (Hospitalization, Other)
  Sender: ORGANON
  Company Number: MA-MLMSERVICE-20250703-PI563327-00064-1

PATIENT
  Age: 7 Year
  Sex: Female

DRUGS (2)
  1. BETAMETHASONE DIPROPIONATE [Suspect]
     Active Substance: BETAMETHASONE DIPROPIONATE
     Indication: Pruritus
  2. BETAMETHASONE DIPROPIONATE [Suspect]
     Active Substance: BETAMETHASONE DIPROPIONATE
     Indication: Skin lesion

REACTIONS (5)
  - Infective keratitis [Recovering/Resolving]
  - Cushing^s syndrome [Recovering/Resolving]
  - Attention deficit hyperactivity disorder [Unknown]
  - Incorrect dose administered [Unknown]
  - Intentional product misuse to child [Unknown]
